FAERS Safety Report 9270389 (Version 1)
Quarter: 2013Q2

REPORT INFORMATION
  Report Type: Spontaneous
  Country: DE (occurrence: GB)
  Receive Date: 20130503
  Receipt Date: 20130503
  Transmission Date: 20140414
  Serious: Yes (Other)
  Sender: FDA-Public Use
  Company Number: DE-JNJFOC-20130416311

PATIENT
  Age: 30 Year
  Sex: Female

DRUGS (2)
  1. NICORETTE INVISI 25MG PATCH [Suspect]
     Route: 062
  2. NICORETTE INVISI 25MG PATCH [Suspect]
     Indication: SMOKING CESSATION THERAPY
     Route: 062

REACTIONS (11)
  - Rash [Unknown]
  - Acne [Unknown]
  - Feeling abnormal [Unknown]
  - Stomatitis [Unknown]
  - Depression [Unknown]
  - Tachycardia [Unknown]
  - Rhinitis [Unknown]
  - Aggression [Unknown]
  - Sleep disorder [Unknown]
  - Vasodilatation [Unknown]
  - Skin wrinkling [Unknown]
